FAERS Safety Report 13265429 (Version 2)
Quarter: 2017Q1

REPORT INFORMATION
  Report Type: Spontaneous
  Country: US (occurrence: US)
  Receive Date: 20170223
  Receipt Date: 20170223
  Transmission Date: 20170428
  Serious: Yes (Hospitalization)
  Sender: FDA-Public Use
  Company Number: US-BRACCO-013763

PATIENT
  Age: 51 Year
  Sex: Male
  Weight: 77 kg

DRUGS (1)
  1. ISOVUE 300 [Suspect]
     Active Substance: IOPAMIDOL
     Indication: COMPUTERISED TOMOGRAM
     Route: 042
     Dates: start: 20160713, end: 20160713

REACTIONS (3)
  - Dyspnoea [Unknown]
  - Nausea [Unknown]
  - Cardio-respiratory arrest [Unknown]

NARRATIVE: CASE EVENT DATE: 20160713
